FAERS Safety Report 10018220 (Version 1)
Quarter: 2014Q1

REPORT INFORMATION
  Report Type: Spontaneous
  Country: US (occurrence: US)
  Receive Date: 20140318
  Receipt Date: 20140318
  Transmission Date: 20141002
  Serious: No
  Sender: FDA-Public Use
  Company Number: US-BRISTOL-MYERS SQUIBB COMPANY-19406131

PATIENT
  Age: 60 Year
  Sex: Female
  Weight: 102.04 kg

DRUGS (1)
  1. ERBITUX [Suspect]
     Indication: RECTAL CANCER
     Dosage: LOT#: IMF360?EXP DATE: APRIL2016

REACTIONS (4)
  - Hypoaesthesia [Unknown]
  - Anxiety [Unknown]
  - Blood pressure decreased [Unknown]
  - Feeling abnormal [Unknown]
